FAERS Safety Report 22634644 (Version 6)
Quarter: 2023Q4

REPORT INFORMATION
  Report Type: Report from Study
  Country: US (occurrence: US)
  Receive Date: 20230623
  Receipt Date: 20231123
  Transmission Date: 20240109
  Serious: No
  Sender: FDA-Public Use
  Company Number: US-002147023-NVSC2023US143736

PATIENT
  Sex: Female

DRUGS (2)
  1. ENTRESTO [Suspect]
     Active Substance: SACUBITRIL\VALSARTAN
     Indication: Product used for unknown indication
     Dosage: 1 DOSAGE FORM, QD (24/26 MG)
     Route: 048
  2. ENTRESTO [Suspect]
     Active Substance: SACUBITRIL\VALSARTAN
     Dosage: 1 DOSAGE FORM, BID (24/26 MG)
     Route: 048
     Dates: start: 202211

REACTIONS (13)
  - Lung disorder [Unknown]
  - Dyspnoea [Recovering/Resolving]
  - Hypoaesthesia [Unknown]
  - Burning sensation [Unknown]
  - Sleep disorder [Unknown]
  - Throat irritation [Unknown]
  - Cough [Unknown]
  - Prescribed underdose [Unknown]
  - Off label use [Unknown]
  - Drug ineffective [Unknown]
  - Dyspnoea [Unknown]
  - Weight decreased [Unknown]
  - Decreased appetite [Unknown]
